FAERS Safety Report 17387097 (Version 2)
Quarter: 2020Q2

REPORT INFORMATION
  Report Type: Report from Study
  Country: FR (occurrence: JP)
  Receive Date: 20200206
  Receipt Date: 20200629
  Transmission Date: 20200713
  Serious: Yes (Hospitalization, Other)
  Sender: FDA-Public Use
  Company Number: FR-PFM-2018-06336

PATIENT
  Age: 2 Month
  Sex: Male

DRUGS (16)
  1. PROPRANOLOL HYDROCHLORIDE. [Suspect]
     Active Substance: PROPRANOLOL HYDROCHLORIDE
     Indication: INFANTILE HAEMANGIOMA
     Dosage: 0.5 MG/KG, BID (2/DAY)
     Route: 048
     Dates: start: 20170922, end: 20170924
  2. PROPRANOLOL HYDROCHLORIDE. [Suspect]
     Active Substance: PROPRANOLOL HYDROCHLORIDE
     Dosage: 1.5 MG/M2, BID (2/DAY)
     Route: 048
     Dates: end: 20180604
  3. MEPTIN [Concomitant]
     Active Substance: PROCATEROL HYDROCHLORIDE
     Indication: PNEUMONIA ADENOVIRAL
     Dosage: UNK
     Route: 055
     Dates: start: 20180615, end: 20180621
  4. PROPRANOLOL HYDROCHLORIDE. [Suspect]
     Active Substance: PROPRANOLOL HYDROCHLORIDE
     Dosage: 1 MG/KG, BID
     Route: 048
     Dates: start: 20170925, end: 20170927
  5. PROPRANOLOL HYDROCHLORIDE. [Suspect]
     Active Substance: PROPRANOLOL HYDROCHLORIDE
     Dosage: 1.5 MG/M2, BID (2/DAY)
     Route: 048
     Dates: start: 20180405, end: 20180426
  6. ASVERIN [Concomitant]
     Indication: PNEUMONIA ADENOVIRAL
     Dosage: 3 ML, UNK
     Route: 048
     Dates: start: 20180615, end: 20180627
  7. PROPRANOLOL HYDROCHLORIDE. [Suspect]
     Active Substance: PROPRANOLOL HYDROCHLORIDE
     Dosage: 1.5 MG/M2, BID (2/DAY)
     Route: 048
     Dates: start: 20180621, end: 20180719
  8. HIRUDOID MILD [Concomitant]
     Indication: PRODUCT USED FOR UNKNOWN INDICATION
     Dosage: UNK
     Route: 061
  9. CARBOCISTEINE [Concomitant]
     Active Substance: CARBOCYSTEINE
     Indication: PNEUMONIA ADENOVIRAL
     Dosage: 6 ML, UNK
     Route: 048
     Dates: start: 20180615, end: 20180627
  10. PRANLUKAST [Concomitant]
     Active Substance: PRANLUKAST
     Indication: PNEUMONIA ADENOVIRAL
     Dosage: 0.7 G, UNK
     Route: 048
     Dates: start: 20180616, end: 20180627
  11. XYZAL [Concomitant]
     Active Substance: LEVOCETIRIZINE DIHYDROCHLORIDE
     Indication: PNEUMONIA ADENOVIRAL
     Dosage: 2.5 ML, UNK
     Route: 048
     Dates: start: 20180616, end: 20180627
  12. PROPRANOLOL HYDROCHLORIDE. [Suspect]
     Active Substance: PROPRANOLOL HYDROCHLORIDE
     Dosage: 1.5 MG/KG, BID (2/DAY)
     Route: 048
     Dates: start: 20170928, end: 20180114
  13. PROPRANOLOL HYDROCHLORIDE. [Suspect]
     Active Substance: PROPRANOLOL HYDROCHLORIDE
     Dosage: 1.5 MG/KG, BID (2/DAY)
     Route: 048
     Dates: start: 20180216, end: 20180315
  14. SODIUM CROMOGLICATE [Concomitant]
     Active Substance: CROMOLYN SODIUM
     Indication: PNEUMONIA ADENOVIRAL
     Dosage: UNK
     Route: 055
     Dates: start: 20180615, end: 20180621
  15. PROPRANOLOL HYDROCHLORIDE. [Suspect]
     Active Substance: PROPRANOLOL HYDROCHLORIDE
     Dosage: 1 MG/KG, BID (2/DAY)
     Route: 048
     Dates: start: 20180115, end: 20180215
  16. PROPRANOLOL HYDROCHLORIDE. [Suspect]
     Active Substance: PROPRANOLOL HYDROCHLORIDE
     Dosage: 1.5 MG/M2, BID (2/DAY)
     Route: 048
     Dates: start: 20180726

REACTIONS (8)
  - Pneumonia adenoviral [Recovered/Resolved]
  - Cyanosis [Recovered/Resolved]
  - Bronchitis [Recovered/Resolved]
  - Aspiration [Recovered/Resolved]
  - Drug titration error [Unknown]
  - Adenovirus infection [Recovered/Resolved]
  - Off label use [Unknown]
  - Gastroenteritis norovirus [Recovered/Resolved]

NARRATIVE: CASE EVENT DATE: 20171001
